FAERS Safety Report 13899208 (Version 1)
Quarter: 2017Q3

REPORT INFORMATION
  Report Type: Spontaneous
  Country: US (occurrence: US)
  Receive Date: 20170823
  Receipt Date: 20170823
  Transmission Date: 20171127
  Serious: No
  Sender: FDA-Public Use
  Company Number: US-JAZZ-2017-US-007803

PATIENT
  Sex: Female

DRUGS (38)
  1. XYREM [Suspect]
     Active Substance: SODIUM OXYBATE
     Dosage: 4.5G, BID
     Route: 048
     Dates: start: 201609
  2. PRUCALOPRIDE [Concomitant]
     Active Substance: PRUCALOPRIDE
  3. VANCOMYCIN [Concomitant]
     Active Substance: VANCOMYCIN
  4. XYREM [Suspect]
     Active Substance: SODIUM OXYBATE
     Indication: NARCOLEPSY
     Dosage: 4.5G, BID
     Route: 048
     Dates: start: 201205, end: 2012
  5. AMBIEN CR [Concomitant]
     Active Substance: ZOLPIDEM TARTRATE
  6. COLACE [Concomitant]
     Active Substance: DOCUSATE SODIUM
  7. GREEN TEA                          /01578101/ [Concomitant]
     Active Substance: GREEN TEA LEAF
  8. LANSOPRAZOLE. [Concomitant]
     Active Substance: LANSOPRAZOLE
  9. LIOTHYRONINE [Concomitant]
     Active Substance: LIOTHYRONINE
  10. LUNESTA [Concomitant]
     Active Substance: ESZOPICLONE
  11. PRAZOSIN. [Concomitant]
     Active Substance: PRAZOSIN
  12. XYREM [Suspect]
     Active Substance: SODIUM OXYBATE
     Dosage: 2.25 G, BID
     Route: 048
     Dates: start: 201608, end: 201609
  13. DHEA [Concomitant]
     Active Substance: PRASTERONE
  14. MOVANTIK [Concomitant]
     Active Substance: NALOXEGOL OXALATE
  15. ZITHROMAX [Concomitant]
     Active Substance: AZITHROMYCIN DIHYDRATE
  16. BACTRIM DS [Concomitant]
     Active Substance: SULFAMETHOXAZOLE\TRIMETHOPRIM
  17. IBUPROFEN. [Concomitant]
     Active Substance: IBUPROFEN
  18. MELATONIN [Concomitant]
     Active Substance: MELATONIN
  19. ONDANSETRON HCL [Concomitant]
     Active Substance: ONDANSETRON HYDROCHLORIDE
  20. VENTOLIN [Concomitant]
     Active Substance: ALBUTEROL SULFATE
  21. 5-HTP                              /00439301/ [Concomitant]
     Active Substance: OXITRIPTAN
  22. CELEBREX [Concomitant]
     Active Substance: CELECOXIB
  23. LEVOTHYROXINE. [Concomitant]
     Active Substance: LEVOTHYROXINE
  24. BENTONITE [Concomitant]
     Active Substance: BENTONITE
  25. CORTEF [Concomitant]
     Active Substance: HYDROCORTISONE
  26. DESMOPRESSIN ACETATE. [Concomitant]
     Active Substance: DESMOPRESSIN ACETATE
  27. DOXYCYCLINE HYCLATE. [Concomitant]
     Active Substance: DOXYCYCLINE HYCLATE
  28. MECLIZINE [Concomitant]
     Active Substance: MECLIZINE HYDROCHLORIDE
  29. NUCYNTA [Concomitant]
     Active Substance: TAPENTADOL HYDROCHLORIDE
  30. PANTOTHENIC ACID [Concomitant]
     Active Substance: PANTOTHENIC ACID
  31. SODIUM CHLORIDE. [Concomitant]
     Active Substance: SODIUM CHLORIDE
  32. ADRENAL [Concomitant]
     Active Substance: EPINEPHRINE
  33. ESTRADIOL                          /00045402/ [Concomitant]
  34. PAMPRIN MAXIMUM [Concomitant]
  35. TEFLARO [Concomitant]
     Active Substance: CEFTAROLINE FOSAMIL
  36. EMLA [Concomitant]
     Active Substance: LIDOCAINE\PRILOCAINE
  37. FENTANYL. [Concomitant]
     Active Substance: FENTANYL
  38. MS CONTIN [Concomitant]
     Active Substance: MORPHINE SULFATE

REACTIONS (1)
  - Ear infection [Not Recovered/Not Resolved]
